FAERS Safety Report 5265402-2 (Version None)
Quarter: 2007Q1

REPORT INFORMATION
  Report Type: 
  Country: None (occurrence: None)
  Receive Date: 20070314
  Receipt Date: 20070129
  Transmission Date: 20070707
  Serious: Yes (Other)
  Sender: FDA-Public Use
  Company Number: AT-PFIZER INC-2007005238

PATIENT
  Age: 52 Year
  Sex: Female

DRUGS (6)
  1. NEURONTIN [Suspect]
     Indication: DRUG DETOXIFICATION
     Dosage: DAILY DOSE:2400MG
     Route: 048
     Dates: start: 20060721, end: 20060723
  2. LYRICA [Suspect]
     Indication: DRUG DETOXIFICATION
     Dosage: DAILY DOSE:450MG
     Route: 048
     Dates: start: 20060725, end: 20070101
  3. LYRICA [Suspect]
     Indication: ANXIETY
  4. LYRICA [Suspect]
     Indication: SLEEP DISORDER
  5. EUTHYROX [Concomitant]
     Route: 048
  6. BENZODIAZEPINE DERIVATIVES [Concomitant]

REACTIONS (6)
  - BREAST CANCER [None]
  - DIZZINESS [None]
  - HEADACHE [None]
  - HOT FLUSH [None]
  - RASH [None]
  - WEIGHT INCREASED [None]
